FAERS Safety Report 15349889 (Version 1)
Quarter: 2018Q3

REPORT INFORMATION
  Report Type: Report from Study
  Country: CO (occurrence: CO)
  Receive Date: 20180904
  Receipt Date: 20180904
  Transmission Date: 20181010
  Serious: Yes (Life-Threatening, Other)
  Sender: FDA-Public Use
  Company Number: PHHY2018CO082869

PATIENT
  Age: 8 Year
  Sex: Male
  Weight: 16 kg

DRUGS (2)
  1. TOBI [Suspect]
     Active Substance: TOBRAMYCIN
     Indication: PSEUDOMONAS INFECTION
  2. TOBI [Suspect]
     Active Substance: TOBRAMYCIN
     Indication: CYSTIC FIBROSIS
     Dosage: 112 MG, Q12H
     Route: 055
     Dates: start: 2011

REACTIONS (6)
  - Drowning [Unknown]
  - Total lung capacity decreased [Unknown]
  - General physical health deterioration [Unknown]
  - Infective pulmonary exacerbation of cystic fibrosis [Unknown]
  - Underweight [Unknown]
  - Headache [Unknown]

NARRATIVE: CASE EVENT DATE: 20180810
